FAERS Safety Report 5387571-6 (Version None)
Quarter: 2007Q3

REPORT INFORMATION
  Report Type: 
  Country: None (occurrence: None)
  Receive Date: 20070716
  Receipt Date: 20070706
  Transmission Date: 20080115
  Serious: Yes (Hospitalization)
  Sender: FDA-Public Use
  Company Number: FRWYE980506JUL07

PATIENT
  Age: 16 Year
  Sex: Male

DRUGS (4)
  1. TAZOCILLINE [Suspect]
     Dosage: 370 MG TOTAL DAILY
     Route: 042
     Dates: start: 20070501, end: 20070511
  2. TAZOCILLINE [Suspect]
     Dosage: UNKNOWN
     Route: 042
     Dates: start: 20070518
  3. OFLOCET [Suspect]
     Dosage: UNKNOWN
     Dates: start: 20070501, end: 20070518
  4. TARGOCID [Concomitant]
     Dosage: UNKNOWN
     Route: 042
     Dates: start: 20070501, end: 20070510

REACTIONS (8)
  - EOSINOPHIL COUNT INCREASED [None]
  - ERYTHEMA [None]
  - PAIN IN EXTREMITY [None]
  - PRURITUS [None]
  - PYREXIA [None]
  - RASH MACULO-PAPULAR [None]
  - SWELLING FACE [None]
  - TENDON INJURY [None]
